FAERS Safety Report 5730490-3 (Version None)
Quarter: 2008Q2

REPORT INFORMATION
  Report Type: 
  Country: None (occurrence: None)
  Receive Date: 20080507
  Receipt Date: 20080430
  Transmission Date: 20081010
  Serious: Yes (Hospitalization)
  Sender: FDA-Public Use
  Company Number: IN-BRISTOL-MYERS SQUIBB COMPANY-13934161

PATIENT
  Age: 51 Year
  Sex: Female

DRUGS (4)
  1. METFORMIN HCL [Suspect]
     Dosage: DISC'D ON 21-SEP-2007 AND AGAIN RESTARTED ON 01-OCT-2007.1AUG-21SEP07(51D)(01OCT07-5FEB08)(127D)
     Route: 048
     Dates: start: 20070801
  2. AMARYL [Suspect]
     Dosage: DISC'D ON 21-SEP-2007 AND AGAIN RESTARTED ON 01-OCT-2007.1AUG-21SEP07(51D)(01OCT07-5FEB08)(127D)
     Route: 048
     Dates: start: 20070801
  3. LANTUS [Suspect]
     Dosage: DISC'D ON 21-SEP-2007 AND AGAIN RESTARTED ON 01-OCT-2007.1AUG-21SEP07(51D)(01OCT07-5FEB08)(127D)
     Route: 058
     Dates: start: 20070801
  4. ENALAPRIL MALEATE [Concomitant]
     Dates: start: 20070705

REACTIONS (3)
  - HYPOGLYCAEMIA [None]
  - LOSS OF CONSCIOUSNESS [None]
  - SYNCOPE [None]
